FAERS Safety Report 6270355-4 (Version None)
Quarter: 2009Q3

REPORT INFORMATION
  Report Type: 
  Country: None (occurrence: None)
  Receive Date: 20090716
  Receipt Date: 20090708
  Transmission Date: 20100115
  Serious: Yes (Death)
  Sender: FDA-Public Use
  Company Number: B0579734A

PATIENT
  Sex: Male
  Weight: 63 kg

DRUGS (7)
  1. KIVEXA [Suspect]
     Indication: HIV INFECTION
     Route: 065
     Dates: start: 19980814
  2. EFAVIRENZ [Concomitant]
     Indication: HIV INFECTION
     Dosage: 600MG PER DAY
     Route: 048
     Dates: start: 19980814
  3. ATAZANAVIR SULFATE [Concomitant]
     Indication: HIV INFECTION
     Dosage: 400MG PER DAY
     Route: 048
     Dates: start: 20070803
  4. RITONAVIR [Concomitant]
     Indication: HIV INFECTION
     Dosage: 100MG PER DAY
     Route: 048
     Dates: start: 20070803
  5. ASPIRIN [Concomitant]
     Dosage: 75MG PER DAY
     Route: 065
  6. ATENOLOL [Concomitant]
     Dosage: 25MG PER DAY
     Route: 065
  7. PRAVASTATIN [Concomitant]
     Dosage: 40MG PER DAY
     Route: 065

REACTIONS (1)
  - MYOCARDIAL INFARCTION [None]
